FAERS Safety Report 9197826 (Version 1)
Quarter: 2013Q1

REPORT INFORMATION
  Report Type: Report from Study
  Country: JP (occurrence: JP)
  Receive Date: 20130328
  Receipt Date: 20130328
  Transmission Date: 20140127
  Serious: Yes (Death, Hospitalization)
  Sender: FDA-Public Use
  Company Number: JP-ACTELION-A-CH2013-80870

PATIENT
  Age: 78 Year
  Sex: Male
  Weight: 52.8 kg

DRUGS (10)
  1. TRACLEER [Suspect]
     Indication: PULMONARY ARTERIAL HYPERTENSION
     Dosage: 62.5 MG, BID
     Route: 048
     Dates: start: 20090817, end: 20091108
  2. TRACLEER [Suspect]
     Dosage: 31.25 MG, QD
     Route: 048
     Dates: start: 20090728, end: 20090805
  3. TRACLEER [Suspect]
     Dosage: 31.25 MG, BID
     Route: 048
     Dates: start: 20090806, end: 20090816
  4. TRACLEER [Suspect]
     Dosage: 78.12 MG, BID
     Route: 047
     Dates: start: 20091109, end: 20100118
  5. BERAPROST SODIUM [Concomitant]
  6. WARFARIN POTASSIUM [Concomitant]
  7. FUROSEMIDE [Concomitant]
  8. ASPIRIN [Concomitant]
  9. ISOSORBIDE MONONITRATE [Concomitant]
  10. OXYGEN [Concomitant]

REACTIONS (5)
  - Pulmonary arterial hypertension [Fatal]
  - Condition aggravated [Fatal]
  - Cardio-respiratory arrest [Unknown]
  - Gamma-glutamyltransferase increased [Unknown]
  - Blood alkaline phosphatase increased [Unknown]
